FAERS Safety Report 13125859 (Version 1)
Quarter: 2017Q1

REPORT INFORMATION
  Report Type: Spontaneous
  Country: US (occurrence: US)
  Receive Date: 20170117
  Receipt Date: 20170117
  Transmission Date: 20170428
  Serious: Yes (Other)
  Sender: FDA-Public Use
  Company Number: None

PATIENT
  Age: 52 Year
  Sex: Female
  Weight: 74.25 kg

DRUGS (11)
  1. H.P. ACTHAR [Suspect]
     Active Substance: CORTICOTROPIN
     Indication: OSTEOARTHRITIS
     Dosage: ?          QUANTITY:7 INJECTION(S);OTHER FREQUENCY:2X WEEKLY;?
     Route: 058
     Dates: start: 20161209, end: 20161230
  2. LIDODERM [Concomitant]
     Active Substance: LIDOCAINE
  3. COSENTYX [Concomitant]
     Active Substance: SECUKINUMAB
  4. H.P. ACTHAR [Suspect]
     Active Substance: CORTICOTROPIN
     Indication: PSORIATIC ARTHROPATHY
     Dosage: ?          QUANTITY:7 INJECTION(S);OTHER FREQUENCY:2X WEEKLY;?
     Route: 058
     Dates: start: 20161209, end: 20161230
  5. SIMPONI ARIA [Concomitant]
     Active Substance: GOLIMUMAB
  6. ACIDOPHILOUS [Concomitant]
     Active Substance: LACTOBACILLUS ACIDOPHILUS
  7. EXCEDRIN MIGRAINE [Concomitant]
     Active Substance: ACETAMINOPHEN\ASPIRIN\CAFFEINE
  8. DURAGESIC PATCH (FENTANYL) [Concomitant]
  9. BENADRYL [Concomitant]
     Active Substance: DIPHENHYDRAMINE HYDROCHLORIDE
  10. PRO BIOTICS [Concomitant]
  11. CENTRIUM GUMMIES FOR WOMEN [Concomitant]

REACTIONS (3)
  - Contusion [None]
  - Pain of skin [None]
  - Headache [None]

NARRATIVE: CASE EVENT DATE: 20161209
